FAERS Safety Report 16246801 (Version 1)
Quarter: 2019Q2

REPORT INFORMATION
  Report Type: Spontaneous
  Country: PT (occurrence: PT)
  Receive Date: 20190427
  Receipt Date: 20190427
  Transmission Date: 20190711
  Serious: Yes (Other)
  Sender: FDA-Public Use
  Company Number: PT-ACCORD-124059

PATIENT
  Age: 88 Year
  Sex: Female

DRUGS (7)
  1. OMEPRAZOLE. [Suspect]
     Active Substance: OMEPRAZOLE
     Indication: PRODUCT USED FOR UNKNOWN INDICATION
     Route: 065
  2. SERTRALINE [Suspect]
     Active Substance: SERTRALINE HYDROCHLORIDE
     Indication: PRODUCT USED FOR UNKNOWN INDICATION
     Route: 065
  3. FUROSEMIDE. [Suspect]
     Active Substance: FUROSEMIDE
     Indication: PRODUCT USED FOR UNKNOWN INDICATION
     Route: 065
  4. VERAPAMIL [Suspect]
     Active Substance: VERAPAMIL HYDROCHLORIDE
     Indication: PRODUCT USED FOR UNKNOWN INDICATION
     Route: 065
  5. PERINDOPRIL/PERINDOPRIL ERBUMINE [Suspect]
     Active Substance: PERINDOPRIL ERBUMINE
     Indication: PRODUCT USED FOR UNKNOWN INDICATION
     Route: 065
  6. AMIODARONE [Suspect]
     Active Substance: AMIODARONE
     Indication: PRODUCT USED FOR UNKNOWN INDICATION
     Route: 065
  7. NIFEDIPINE. [Suspect]
     Active Substance: NIFEDIPINE
     Indication: PRODUCT USED FOR UNKNOWN INDICATION
     Route: 065

REACTIONS (11)
  - Blood thyroid stimulating hormone increased [Recovering/Resolving]
  - Bradycardia [Recovering/Resolving]
  - Myelodysplastic syndrome [Recovering/Resolving]
  - Hypotension [Recovering/Resolving]
  - Thyroxine free decreased [Recovering/Resolving]
  - Inflammatory marker increased [Recovering/Resolving]
  - Hypokalaemia [Recovering/Resolving]
  - Hypothyroidism [Recovering/Resolving]
  - Anti-thyroid antibody positive [Recovering/Resolving]
  - Generalised oedema [Recovering/Resolving]
  - Loss of personal independence in daily activities [Recovering/Resolving]
